FAERS Safety Report 10246114 (Version 1)
Quarter: 2014Q2

REPORT INFORMATION
  Report Type: Report from Study
  Country: CA (occurrence: CA)
  Receive Date: 20140619
  Receipt Date: 20140619
  Transmission Date: 20141212
  Serious: Yes (Other)
  Sender: FDA-Public Use
  Company Number: CA-JNJFOC-20140607970

PATIENT
  Age: 49 Year
  Sex: Female
  Weight: 49.9 kg

DRUGS (3)
  1. REMICADE [Suspect]
     Indication: CROHN^S DISEASE
     Route: 042
  2. REMICADE [Suspect]
     Indication: CROHN^S DISEASE
     Route: 042
     Dates: start: 20131117
  3. IRON [Concomitant]
     Route: 065

REACTIONS (2)
  - Gastrointestinal stoma complication [Unknown]
  - Pouchitis [Unknown]
